FAERS Safety Report 11415413 (Version 1)
Quarter: 2015Q3

REPORT INFORMATION
  Report Type: Spontaneous
  Country: US (occurrence: None)
  Receive Date: 20150824
  Receipt Date: 20150824
  Transmission Date: 20151125
  Serious: Yes (Disabling)
  Sender: FDA-Public Use
  Company Number: None

PATIENT
  Age: 31 Year
  Sex: Male
  Weight: 74.84 kg

DRUGS (7)
  1. PREDNISONE. [Concomitant]
     Active Substance: PREDNISONE
  2. PERCOCET [Concomitant]
     Active Substance: ACETAMINOPHEN\OXYCODONE HYDROCHLORIDE
  3. NEURONTIN [Concomitant]
     Active Substance: GABAPENTIN
  4. DEXAMETHASONE 1CC [Suspect]
     Active Substance: DEXAMETHASONE
     Indication: BACK PAIN
     Dates: start: 20150227
  5. OXYCONTIN [Concomitant]
     Active Substance: OXYCODONE HYDROCHLORIDE
  6. XANAX [Concomitant]
     Active Substance: ALPRAZOLAM
  7. DEXAMETHASONE 1CC [Suspect]
     Active Substance: DEXAMETHASONE
     Indication: MUSCLE STRAIN
     Dates: start: 20150227

REACTIONS (3)
  - Pain [None]
  - Sciatica [None]
  - Burning sensation [None]

NARRATIVE: CASE EVENT DATE: 20130227
